FAERS Safety Report 17647956 (Version 1)
Quarter: 2020Q2

REPORT INFORMATION
  Report Type: Spontaneous
  Country: US (occurrence: US)
  Receive Date: 20200409
  Receipt Date: 20200409
  Transmission Date: 20200713
  Serious: Yes (Hospitalization)
  Sender: FDA-Public Use
  Company Number: US-ROCHE-2576743

PATIENT
  Age: 32 Year
  Sex: Male

DRUGS (1)
  1. PULMOZYME [Suspect]
     Active Substance: DORNASE ALFA
     Indication: PRODUCT USED FOR UNKNOWN INDICATION
     Dosage: DAILY
     Route: 055

REACTIONS (4)
  - Pseudocyst [Unknown]
  - Cholelithiasis [Unknown]
  - Gastric stent insertion [Unknown]
  - Product dose omission [Unknown]

NARRATIVE: CASE EVENT DATE: 20200305
